FAERS Safety Report 17348421 (Version 1)
Quarter: 2020Q1

REPORT INFORMATION
  Report Type: Report from Study
  Country: US (occurrence: US)
  Receive Date: 20200129
  Receipt Date: 20200129
  Transmission Date: 20200409
  Serious: No
  Sender: FDA-Public Use
  Company Number: US-EXELIXIS-CABO-19024063

PATIENT
  Age: 60 Year
  Sex: Female

DRUGS (4)
  1. CABOMETYX [Suspect]
     Active Substance: CABOZANTINIB S-MALATE
     Indication: RENAL CANCER
     Dosage: 60 MG, QD
     Route: 048
     Dates: start: 201901
  2. FLONASE [Concomitant]
     Active Substance: FLUTICASONE PROPIONATE
  3. XYZAL [Concomitant]
     Active Substance: LEVOCETIRIZINE DIHYDROCHLORIDE
  4. BUPROPION. [Concomitant]
     Active Substance: BUPROPION

REACTIONS (8)
  - Alopecia [Unknown]
  - Dry skin [Unknown]
  - Dehydration [Unknown]
  - Malignant neoplasm progression [Unknown]
  - Oral pain [Unknown]
  - Hair colour changes [Unknown]
  - Skin ulcer [Unknown]
  - Blood pressure increased [Unknown]

NARRATIVE: CASE EVENT DATE: 20190326
